FAERS Safety Report 6868043-6 (Version None)
Quarter: 2010Q3

REPORT INFORMATION
  Report Type: 
  Country: None (occurrence: None)
  Receive Date: 20100722
  Receipt Date: 20080519
  Transmission Date: 20110219
  Serious: No
  Sender: FDA-Public Use
  Company Number: US-PFIZER INC-2008045142

PATIENT
  Sex: Female
  Weight: 63.5 kg

DRUGS (4)
  1. CHANTIX [Suspect]
     Indication: SMOKING CESSATION THERAPY
     Dates: start: 20080515, end: 20080518
  2. ATENOLOL [Concomitant]
     Indication: HYPERTENSION
  3. LORAZEPAM [Concomitant]
     Indication: SLEEP DISORDER
  4. OMEPRAZOLE [Concomitant]
     Indication: GASTRIC DISORDER

REACTIONS (3)
  - AGGRESSION [None]
  - CRYING [None]
  - HOSTILITY [None]
